FAERS Safety Report 9223120 (Version 1)
Quarter: 2013Q2

REPORT INFORMATION
  Report Type: Spontaneous
  Country: US (occurrence: US)
  Receive Date: 20130410
  Receipt Date: 20130410
  Transmission Date: 20140414
  Serious: Yes (Hospitalization, Other)
  Sender: FDA-Public Use
  Company Number: US-ELI_LILLY_AND_COMPANY-US201304000077

PATIENT
  Age: 59 Year
  Sex: Male

DRUGS (6)
  1. ALIMTA [Suspect]
     Indication: LUNG NEOPLASM MALIGNANT
     Dosage: 900 MG, OTHER
     Route: 042
     Dates: start: 20120910
  2. METOPROLOL TARTRATE [Concomitant]
     Dosage: 50 MG, BID
     Route: 065
  3. SIMVASTIN [Concomitant]
     Dosage: 10 MG, UNK
     Route: 065
  4. TAMSULOSIN [Concomitant]
     Dosage: 0.4 MG, UNK
     Route: 065
  5. HYDROCODONE W/ACETAMINOPHEN [Concomitant]
     Dosage: UNK, OTHER
     Route: 065
  6. LEVOTHYROXINE [Concomitant]
     Dosage: 75 UG, QD
     Route: 065

REACTIONS (19)
  - Loss of consciousness [Unknown]
  - Blindness [Unknown]
  - Grand mal convulsion [Unknown]
  - Headache [Unknown]
  - Nervous system disorder [Unknown]
  - Vasogenic cerebral oedema [Unknown]
  - Lung infiltration [Unknown]
  - Metastases to central nervous system [Unknown]
  - Pleural effusion [Unknown]
  - Lung disorder [Unknown]
  - Dizziness [Unknown]
  - Pneumonia [Unknown]
  - Sinus disorder [Not Recovered/Not Resolved]
  - Head injury [Unknown]
  - Dizziness [Unknown]
  - Fall [Unknown]
  - Visual field defect [Unknown]
  - Pain in extremity [Unknown]
  - Pain in extremity [Unknown]
